FAERS Safety Report 12618051 (Version 1)
Quarter: 2016Q3

REPORT INFORMATION
  Report Type: Spontaneous
  Country: US (occurrence: None)
  Receive Date: 20160802
  Receipt Date: 20160802
  Transmission Date: 20161109
  Serious: No
  Sender: FDA-Public Use
  Company Number: None

PATIENT
  Age: 93 Year
  Sex: Female
  Weight: 60.33 kg

DRUGS (7)
  1. CATAPRES [Concomitant]
     Active Substance: CLONIDINE HYDROCHLORIDE
  2. OCUVITE [Concomitant]
     Active Substance: VITAMINS
  3. PREVAGEN [Concomitant]
     Active Substance: DIETARY SUPPLEMENT
  4. FISH OIL [Concomitant]
     Active Substance: FISH OIL
  5. CELESTONE [Suspect]
     Active Substance: BETAMETHASONE
     Indication: BACK PAIN
     Dates: start: 20150716
  6. TYLENOL [Concomitant]
     Active Substance: ACETAMINOPHEN
  7. CITRACAL [Suspect]
     Active Substance: CALCIUM CITRATE

REACTIONS (8)
  - Soft tissue disorder [None]
  - Tooth loss [None]
  - Pain [None]
  - Injury [None]
  - Loss of consciousness [None]
  - Hip fracture [None]
  - Gait disturbance [None]
  - Fall [None]

NARRATIVE: CASE EVENT DATE: 20150716
